FAERS Safety Report 14661862 (Version 1)
Quarter: 2018Q1

REPORT INFORMATION
  Report Type: Report from Study
  Country: US (occurrence: US)
  Receive Date: 20180320
  Receipt Date: 20180320
  Transmission Date: 20180509
  Serious: Yes (Other)
  Sender: FDA-Public Use
  Company Number: US-ASTRAZENECA-2018SE32888

PATIENT
  Age: 75 Year
  Sex: Female

DRUGS (5)
  1. IPRATROPIUM BROMIDE. [Concomitant]
     Active Substance: IPRATROPIUM BROMIDE
  2. SYMBICORT [Suspect]
     Active Substance: BUDESONIDE\FORMOTEROL FUMARATE DIHYDRATE
     Dosage: 160 UNKNOWN UNKNOWN
     Route: 055
  3. CYTOCHROME C [Concomitant]
  4. ALBUTEROL. [Concomitant]
     Active Substance: ALBUTEROL
  5. CLONAZEPAM. [Concomitant]
     Active Substance: CLONAZEPAM
     Indication: RAPID EYE MOVEMENTS SLEEP ABNORMAL

REACTIONS (9)
  - Feeling abnormal [Unknown]
  - Pneumonia fungal [Unknown]
  - Speech disorder [Unknown]
  - Diarrhoea [Unknown]
  - Wheezing [Unknown]
  - Dementia [Unknown]
  - Dyspnoea [Unknown]
  - General physical health deterioration [Unknown]
  - Product use issue [Unknown]
